FAERS Safety Report 9600293 (Version 1)
Quarter: 2013Q4

REPORT INFORMATION
  Report Type: Spontaneous
  Country: US (occurrence: US)
  Receive Date: 20131004
  Receipt Date: 20131004
  Transmission Date: 20140711
  Serious: No
  Sender: FDA-Public Use
  Company Number: US-AMGEN-USASP2013034392

PATIENT
  Age: 57 Year
  Sex: Female
  Weight: 82.54 kg

DRUGS (8)
  1. ENBREL [Suspect]
     Indication: PRODUCT USED FOR UNKNOWN INDICATION
     Dosage: 50 MG, QWK
     Route: 058
  2. PAXIL                              /00500401/ [Concomitant]
     Dosage: 10 MG, UNK
  3. DICLOFENAC [Concomitant]
     Dosage: 100 MG, UNK
  4. CALCIUM 600 [Concomitant]
     Dosage: UNK
  5. VITAMIN D                          /00107901/ [Concomitant]
     Dosage: 1000 UNIT, UNK
  6. MULTIVITAMINS, PLAIN [Concomitant]
     Dosage: UNK
  7. ESTER C                            /00008001/ [Concomitant]
     Dosage: UNK
  8. ECHINACEA PURPUREA [Concomitant]
     Dosage: UNK

REACTIONS (2)
  - Headache [Unknown]
  - Hot flush [Unknown]
